FAERS Safety Report 5578606-6 (Version None)
Quarter: 2007Q4

REPORT INFORMATION
  Report Type: 
  Country: None (occurrence: None)
  Receive Date: 20071231
  Receipt Date: 20071228
  Transmission Date: 20080405
  Serious: Yes (Life-Threatening, Hospitalization)
  Sender: FDA-Public Use
  Company Number: PHBS2007JP10987

PATIENT
  Age: 32 Year
  Sex: Female
  Weight: 45 kg

DRUGS (6)
  1. TOFRANIL [Suspect]
     Indication: DEPRESSION
     Route: 048
  2. TOFRANIL [Suspect]
     Dosage: 3650 MG, ONCE/SINGLE
     Route: 048
     Dates: start: 20030527, end: 20030527
  3. TRIAZOLAM [Suspect]
     Dosage: 3.25 MG, ONCE/SINGLE
     Route: 048
     Dates: start: 20030527, end: 20030527
  4. CLOXAZOLAM [Suspect]
     Dosage: 172 MG, ONCE/SINGLE
     Route: 048
     Dates: start: 20030527, end: 20030527
  5. BROMAZEPAM [Suspect]
     Dosage: 50 MG, ONCE/SINGLE
     Route: 048
     Dates: start: 20030527, end: 20030527
  6. FLUNITRAZEPAM [Suspect]
     Dosage: 20 MG, ONCE/SINGLE
     Route: 048
     Dates: start: 20030527, end: 20030527

REACTIONS (12)
  - ARRHYTHMIA [None]
  - BLOOD PRESSURE DECREASED [None]
  - CARDIO-RESPIRATORY ARREST [None]
  - DEPRESSED LEVEL OF CONSCIOUSNESS [None]
  - GLOSSOPTOSIS [None]
  - INTUBATION [None]
  - LIFE SUPPORT [None]
  - OVERDOSE [None]
  - SHOCK [None]
  - SUICIDE ATTEMPT [None]
  - VENTRICULAR EXTRASYSTOLES [None]
  - VENTRICULAR TACHYCARDIA [None]
